FAERS Safety Report 24974230 (Version 3)
Quarter: 2025Q3

REPORT INFORMATION
  Report Type: Report from Study
  Country: CA (occurrence: CA)
  Receive Date: 20250217
  Receipt Date: 20250701
  Transmission Date: 20251020
  Serious: Yes (Other)
  Sender: CELLTRION
  Company Number: CA-CELLTRION INC.-2025CA004111

PATIENT

DRUGS (5)
  1. RITUXIMAB [Suspect]
     Active Substance: RITUXIMAB
     Indication: Rheumatoid arthritis
     Route: 042
  2. RITUXIMAB [Suspect]
     Active Substance: RITUXIMAB
     Dosage: 1000 MILLIGRAM 1 EVERY 2 WEEKS
     Route: 042
  3. ACETAMINOPHEN [Concomitant]
     Active Substance: ACETAMINOPHEN
     Indication: Product used for unknown indication
     Route: 048
  4. METHYLPREDNISOLONE [Concomitant]
     Active Substance: METHYLPREDNISOLONE
     Indication: Product used for unknown indication
     Route: 042
  5. DIPHENHYDRAMINE [Concomitant]
     Active Substance: DIPHENHYDRAMINE
     Indication: Product used for unknown indication
     Route: 042

REACTIONS (17)
  - Chest discomfort [Unknown]
  - Coronary artery stenosis [Unknown]
  - Blood pressure increased [Unknown]
  - Eye disorder [Unknown]
  - Heart rate decreased [Unknown]
  - Peripheral swelling [Unknown]
  - Renal pain [Unknown]
  - Rheumatoid arthritis [Unknown]
  - Back pain [Unknown]
  - Angina pectoris [Unknown]
  - Arrhythmia [Unknown]
  - Infusion site pain [Unknown]
  - Dyspnoea [Unknown]
  - Heart rate irregular [Unknown]
  - Treatment noncompliance [Unknown]
  - Underdose [Unknown]
  - Intentional product use issue [Unknown]
